FAERS Safety Report 16239913 (Version 3)
Quarter: 2020Q1

REPORT INFORMATION
  Report Type: Spontaneous
  Country: FR (occurrence: FR)
  Receive Date: 20190425
  Receipt Date: 20200227
  Transmission Date: 20200409
  Serious: Yes (Other)
  Sender: FDA-Public Use
  Company Number: FR-INDIVIOR LIMITED-INDV-119144-2019

PATIENT
  Age: 54 Year
  Sex: Male

DRUGS (9)
  1. ALCOHOL. [Suspect]
     Active Substance: ALCOHOL
     Indication: PRODUCT USED FOR UNKNOWN INDICATION
     Dosage: UNK
     Route: 048
  2. BUPRENORPHINE. [Suspect]
     Active Substance: BUPRENORPHINE
     Indication: PRODUCT USED FOR UNKNOWN INDICATION
     Dosage: UNK
     Route: 051
  3. NICOTIANA TABACUM [Suspect]
     Active Substance: TOBACCO LEAF
     Indication: PRODUCT USED FOR UNKNOWN INDICATION
     Dosage: UNK
     Route: 055
  4. BUPRENORPHINE. [Suspect]
     Active Substance: BUPRENORPHINE
     Dosage: UNK
     Route: 045
  5. MORPHINE [Suspect]
     Active Substance: MORPHINE
     Dosage: 50 MG EVERY 15 DAYS
     Route: 042
  6. MORPHINE [Suspect]
     Active Substance: MORPHINE
     Indication: PRODUCT USED FOR UNKNOWN INDICATION
     Dosage: UNK
     Route: 051
  7. MORPHINE [Suspect]
     Active Substance: MORPHINE
     Dosage: 50 MG EVERY 15 DAYS
     Route: 045
  8. CLONAZEPAM. [Suspect]
     Active Substance: CLONAZEPAM
     Indication: OFF LABEL USE
     Dosage: UNK
     Route: 065
  9. BROMAZEPAM [Suspect]
     Active Substance: BROMAZEPAM
     Indication: OFF LABEL USE
     Dosage: UNK, 8 TO 20 PILLS
     Route: 048
     Dates: start: 1981

REACTIONS (5)
  - Cluster headache [Not Recovered/Not Resolved]
  - Facial bones fracture [Unknown]
  - Nasal septum deviation [Unknown]
  - Substance abuse [Unknown]
  - Intentional product use issue [Unknown]

NARRATIVE: CASE EVENT DATE: 1981
